FAERS Safety Report 6123697-7 (Version None)
Quarter: 2009Q1

REPORT INFORMATION
  Report Type: 
  Country: None (occurrence: None)
  Receive Date: 20090317
  Receipt Date: 20090305
  Transmission Date: 20090719
  Serious: Yes (Hospitalization)
  Sender: FDA-Public Use
  Company Number: PAR_02874_2009

PATIENT
  Age: 27 Year
  Sex: Female

DRUGS (4)
  1. CLOMIPHENE CITRATE [Suspect]
     Indication: INFERTILITY
     Dosage: (GRADUALLY INCREASED FROM 50 MG TO 150 MG FOR 5 CONSECUTIVE DAYS PER WEEK), (DF)
  2. ALLOPURINOL [Concomitant]
  3. COLCHICINE [Concomitant]
  4. FIBRATES [Concomitant]

REACTIONS (3)
  - BLOOD TRIGLYCERIDES INCREASED [None]
  - PANCREATITIS ACUTE [None]
  - TREATMENT NONCOMPLIANCE [None]
